FAERS Safety Report 9690285 (Version 2)
Quarter: 2014Q1

REPORT INFORMATION
  Report Type: Report from Study
  Country: CL (occurrence: CL)
  Receive Date: 20131115
  Receipt Date: 20140218
  Transmission Date: 20141002
  Serious: Yes (Hospitalization, Other)
  Sender: FDA-Public Use
  Company Number: CL-ABBVIE-13P-034-1167001-00

PATIENT
  Age: 33 Year
  Sex: Female

DRUGS (5)
  1. HUMIRA [Suspect]
     Indication: ANKYLOSING SPONDYLITIS
     Route: 058
     Dates: start: 20130109, end: 201312
  2. HUMIRA [Suspect]
     Route: 058
     Dates: start: 201312
  3. LEVOTHYROXINE [Concomitant]
     Indication: HYPOTHYROIDISM
     Route: 048
  4. METHADONE [Concomitant]
     Indication: PAIN
     Route: 048
     Dates: end: 20131104
  5. DEFLAZACORT [Concomitant]
     Indication: ANKYLOSING SPONDYLITIS
     Route: 048

REACTIONS (3)
  - Loss of consciousness [Recovered/Resolved with Sequelae]
  - Epilepsy [Unknown]
  - Oxygen saturation decreased [Recovered/Resolved with Sequelae]
